FAERS Safety Report 4590860-6 (Version None)
Quarter: 2005Q1

REPORT INFORMATION
  Report Type: 
  Country: None (occurrence: None)
  Receive Date: 20050225
  Receipt Date: 20041020
  Transmission Date: 20050727
  Serious: No
  Sender: FDA-Public Use
  Company Number: US-GLAXOSMITHKLINE-A0530628A

PATIENT
  Age: 53 Year
  Sex: Female

DRUGS (13)
  1. DARAPRIM [Suspect]
     Indication: TOXOPLASMOSIS
     Dosage: 75MG PER DAY
     Route: 048
  2. SIMETHICON [Concomitant]
  3. REGLAN [Concomitant]
  4. VASOTEC [Concomitant]
  5. TYLENOL (CAPLET) [Concomitant]
  6. ECOTRIN [Concomitant]
  7. COLACE [Concomitant]
  8. PREVACID [Concomitant]
  9. SYNTHROID [Concomitant]
  10. LEUCOVORIN [Concomitant]
  11. DIFLUCAN [Concomitant]
  12. AZULFIDINE [Concomitant]
  13. SENOKOT [Concomitant]

REACTIONS (1)
  - NODULE [None]
